FAERS Safety Report 17447005 (Version 1)
Quarter: 2020Q1

REPORT INFORMATION
  Report Type: Spontaneous
  Country: US (occurrence: US)
  Receive Date: 20200221
  Receipt Date: 20200221
  Transmission Date: 20200409
  Serious: No
  Sender: FDA-Public Use
  Company Number: US-IBSA PHARMA-TIR-2019-0889

PATIENT
  Age: 42 Year
  Sex: Female

DRUGS (3)
  1. TIROSINT [Suspect]
     Active Substance: LEVOTHYROXINE SODIUM
     Indication: HYPOTHYROIDISM
     Dosage: 75MCG ALTERNATING WITH 88MCG
     Route: 048
     Dates: start: 2016
  2. TIROSINT [Suspect]
     Active Substance: LEVOTHYROXINE SODIUM
     Indication: HYPOTHYROIDISM
     Dosage: 75MCG ALTERNATING WITH 88MCG
     Route: 048
     Dates: start: 2016
  3. ATENOLOL. [Suspect]
     Active Substance: ATENOLOL
     Indication: EXTRASYSTOLES
     Route: 048

REACTIONS (4)
  - Urinary tract infection [Unknown]
  - Ventricular tachycardia [Unknown]
  - Extrasystoles [Unknown]
  - Atrial fibrillation [Unknown]

NARRATIVE: CASE EVENT DATE: 201910
